FAERS Safety Report 8900952 (Version 1)
Quarter: 2012Q4

REPORT INFORMATION
  Report Type: 
  Country: US (occurrence: US)
  Receive Date: 20121109
  Receipt Date: 20121109
  Transmission Date: 20130627
  Serious: Yes (Hospitalization, Other)
  Sender: FDA-Public Use
  Company Number: US-TEVA-369034USA

PATIENT
  Age: 79 Year
  Sex: Male

DRUGS (11)
  1. METOCLOPRAMIDE [Suspect]
     Indication: GASTRIC HYPOMOTILITY
     Dosage: 10mg every 6 hours
     Route: 042
  2. CARBIDOPA,LEVODOPA [Concomitant]
     Dosage: carbidopa 100mg + levodopa 400mg every 12 hours
     Route: 048
  3. LISINOPRIL [Concomitant]
     Dosage: 10mg daily
     Route: 048
  4. FUROSEMIDE [Concomitant]
     Dosage: 20mg daily
     Route: 048
  5. INSULIN SUSPENSION ISOPHANE [Concomitant]
     Indication: TYPE 2 DIABETES MELLITUS
     Dosage: 20 units every morning and 16 units every evening
     Route: 058
  6. ERTAPENEM [Concomitant]
     Dosage: 1g daily x 2
     Route: 042
  7. ONDANSETRON [Concomitant]
     Dosage: 4mg
     Route: 042
  8. NEOSTIGMINE [Concomitant]
     Dosage: 5mg
     Route: 042
  9. GLYCOPYRROLATE [Concomitant]
     Dosage: 1mg
     Route: 042
  10. FAMOTIDINE [Concomitant]
     Dosage: 20mg twice daily
     Route: 042
  11. MORPHINE [Concomitant]
     Dosage: 10mg (total amount given in postop recovery)
     Route: 042

REACTIONS (1)
  - Metabolic encephalopathy [Recovered/Resolved]
